FAERS Safety Report 8450317-9 (Version None)
Quarter: 2012Q2

REPORT INFORMATION
  Report Type: 
  Country: None (occurrence: None)
  Receive Date: 20120620
  Receipt Date: 20120611
  Transmission Date: 20120825
  Serious: Yes (Other)
  Sender: FDA-Public Use
  Company Number: FR-MPIJNJ-2012-02426

PATIENT

DRUGS (1)
  1. VELCADE [Suspect]
     Dosage: 2.1 MG, UNK
     Route: 042
     Dates: start: 20110921, end: 20111111

REACTIONS (2)
  - NEUROPATHY PERIPHERAL [None]
  - FALL [None]
